FAERS Safety Report 24215410 (Version 1)
Quarter: 2024Q3

REPORT INFORMATION
  Report Type: Report from Study
  Country: FR (occurrence: FR)
  Receive Date: 20240816
  Receipt Date: 20240816
  Transmission Date: 20241016
  Serious: Yes (Hospitalization, Other)
  Sender: MERCK KGAA
  Company Number: FR-Merck Healthcare KGaA-2024008126

PATIENT

DRUGS (3)
  1. LEVOTHYROXINE [Suspect]
     Active Substance: LEVOTHYROXINE\LEVOTHYROXINE SODIUM
     Indication: Post procedural hypothyroidism
     Dosage: 100
  2. ERGOCALCIFEROL [Concomitant]
     Active Substance: ERGOCALCIFEROL
     Indication: Product used for unknown indication
  3. NATHYROID [Concomitant]
     Indication: Product used for unknown indication

REACTIONS (12)
  - Pulmonary embolism [Unknown]
  - Autoimmune thyroiditis [Unknown]
  - Surgery [Unknown]
  - Hyperthyroidism [Unknown]
  - Pain [Unknown]
  - Malaise [Unknown]
  - Hypothyroidism [Unknown]
  - Decreased appetite [Unknown]
  - Constipation [Unknown]
  - Dizziness [Unknown]
  - Fatigue [Not Recovered/Not Resolved]
  - Vitamin D decreased [Unknown]
